FAERS Safety Report 20511029 (Version 1)
Quarter: 2022Q1

REPORT INFORMATION
  Report Type: Spontaneous
  Country: SE (occurrence: SE)
  Receive Date: 20220224
  Receipt Date: 20220224
  Transmission Date: 20220424
  Serious: Yes (Hospitalization)
  Sender: FDA-Public Use
  Company Number: None

PATIENT
  Age: 81 Year
  Sex: Female
  Weight: 67 kg

DRUGS (1)
  1. CLOPIDOGREL [Suspect]
     Active Substance: CLOPIDOGREL BISULFATE
     Indication: Myocardial infarction
     Dosage: 75 MG 1 PER DAY
     Route: 048
     Dates: start: 20180720, end: 20210228

REACTIONS (2)
  - Spinal cord haemorrhage [Recovered/Resolved]
  - Monoplegia [Recovered/Resolved with Sequelae]

NARRATIVE: CASE EVENT DATE: 20210228
